FAERS Safety Report 11684780 (Version 1)
Quarter: 2015Q4

REPORT INFORMATION
  Report Type: Spontaneous
  Country: US (occurrence: US)
  Receive Date: 20151029
  Receipt Date: 20151029
  Transmission Date: 20160304
  Serious: No
  Sender: FDA-Public Use
  Company Number: PHEH2015US021095

PATIENT
  Sex: Female

DRUGS (1)
  1. VOTRIENT [Suspect]
     Active Substance: PAZOPANIB HYDROCHLORIDE
     Indication: METASTASES TO KIDNEY
     Dosage: 200 MG, QD (TAKE 4 TABLETS BY MOUTH ONCE DAILY)
     Route: 048
     Dates: start: 20150905

REACTIONS (3)
  - Headache [Unknown]
  - Gait disturbance [Unknown]
  - Nausea [Unknown]
